FAERS Safety Report 6157836-9 (Version None)
Quarter: 2009Q2

REPORT INFORMATION
  Report Type: 
  Country: None (occurrence: None)
  Receive Date: 20090416
  Receipt Date: 20090410
  Transmission Date: 20091009
  Serious: Yes (Hospitalization, Other)
  Sender: FDA-Public Use
  Company Number: US-ASTRAZENECA-2008UW27556

PATIENT
  Age: 54 Year
  Sex: Female
  Weight: 124.7 kg

DRUGS (3)
  1. SEROQUEL [Suspect]
     Indication: DEPRESSION
     Route: 048
     Dates: start: 20050412, end: 20070409
  2. EFFEXOR [Concomitant]
     Dates: start: 20070101
  3. PAMALAR [Concomitant]

REACTIONS (6)
  - ARTHRALGIA [None]
  - DIABETES MELLITUS [None]
  - HIP ARTHROPLASTY [None]
  - KNEE ARTHROPLASTY [None]
  - OSTEOARTHRITIS [None]
  - SYSTEMIC LUPUS ERYTHEMATOSUS [None]
